FAERS Safety Report 9838084 (Version 1)
Quarter: 2014Q1

REPORT INFORMATION
  Report Type: Spontaneous
  Country: US (occurrence: US)
  Receive Date: 20140123
  Receipt Date: 20140123
  Transmission Date: 20141002
  Serious: Yes (Other)
  Sender: FDA-Public Use
  Company Number: US-JNJFOC-20140111356

PATIENT
  Age: 43 Year
  Sex: Female
  Weight: 106.14 kg

DRUGS (2)
  1. TOPAMAX [Suspect]
     Indication: WEIGHT DECREASED
     Route: 048
     Dates: start: 20140116
  2. ARMOUR THYROID [Concomitant]
     Indication: THYROID DISORDER
     Route: 048
     Dates: start: 2008

REACTIONS (14)
  - Loss of consciousness [Recovered/Resolved]
  - Hypertension [Not Recovered/Not Resolved]
  - Off label use [Not Recovered/Not Resolved]
  - Dysstasia [Recovered/Resolved]
  - Blood glucose decreased [Recovered/Resolved]
  - Eating disorder [Not Recovered/Not Resolved]
  - Hypoaesthesia [Not Recovered/Not Resolved]
  - Sensory disturbance [Not Recovered/Not Resolved]
  - Confusional state [Not Recovered/Not Resolved]
  - Dyspnoea [Not Recovered/Not Resolved]
  - Pain [Not Recovered/Not Resolved]
  - Headache [Not Recovered/Not Resolved]
  - Dizziness [Not Recovered/Not Resolved]
  - Abasia [Not Recovered/Not Resolved]
